FAERS Safety Report 7648711-9 (Version None)
Quarter: 2011Q3

REPORT INFORMATION
  Report Type: 
  Country: None (occurrence: None)
  Receive Date: 20110801
  Receipt Date: 20110725
  Transmission Date: 20111222
  Serious: Yes (Death)
  Sender: FDA-Public Use
  Company Number: PHHY2011FR67267

PATIENT
  Age: 36 Year
  Sex: Male

DRUGS (10)
  1. SOLU-MEDROL [Concomitant]
     Dosage: 10 MG/KG
  2. SOLU-MEDROL [Concomitant]
     Dosage: 120 MG, UNK
  3. TAZOBACTAM [Concomitant]
     Dosage: UNK
  4. SOLU-MEDROL [Concomitant]
     Dosage: 120 MG, UNK
  5. PIPERACILLIN [Concomitant]
     Dosage: UNK
  6. BASILIXIMAB [Suspect]
     Indication: HEART AND LUNG TRANSPLANT
     Dosage: 20 MG, UNK
     Route: 042
  7. CYCLOSPORINE [Suspect]
     Indication: HEART AND LUNG TRANSPLANT
     Dosage: UNK
  8. TOBRAMYCIN [Concomitant]
     Dosage: UNK
  9. VANCOMYCIN [Concomitant]
     Dosage: UNK
  10. SOLU-MEDROL [Concomitant]
     Dosage: 120 MG, UNK

REACTIONS (9)
  - HAEMOTHORAX [None]
  - PNEUMOTHORAX [None]
  - SUBCUTANEOUS EMPHYSEMA [None]
  - PLEURAL EFFUSION [None]
  - SYSTEMIC MYCOSIS [None]
  - MULTI-ORGAN FAILURE [None]
  - PLEURAL HAEMORRHAGE [None]
  - PNEUMOMEDIASTINUM [None]
  - WHITE BLOOD CELL COUNT INCREASED [None]
